FAERS Safety Report 6696051-7 (Version None)
Quarter: 2010Q2

REPORT INFORMATION
  Report Type: 
  Country: None (occurrence: None)
  Receive Date: 20100426
  Receipt Date: 20100414
  Transmission Date: 20101027
  Serious: Yes (Hospitalization, Other)
  Sender: FDA-Public Use
  Company Number: PHBS2007JP17860

PATIENT
  Age: 11 Month
  Sex: Female

DRUGS (5)
  1. TEGRETOL [Suspect]
     Indication: CONVULSION PROPHYLAXIS
     Route: 048
  2. PHENOBARBITAL [Suspect]
     Indication: CONVULSION
     Route: 048
  3. POLYGAM S/D [Concomitant]
     Indication: ENCEPHALOPATHY
  4. ANALGESICS [Concomitant]
     Indication: ENCEPHALOPATHY
     Route: 042
  5. ACYCLOVIR [Concomitant]

REACTIONS (12)
  - CEREBRAL ATROPHY [None]
  - COGNITIVE DISORDER [None]
  - DRUG HYPERSENSITIVITY [None]
  - DRUG RASH WITH EOSINOPHILIA AND SYSTEMIC SYMPTOMS [None]
  - EOSINOPHIL COUNT INCREASED [None]
  - FACE OEDEMA [None]
  - LYMPHADENOPATHY [None]
  - PIGMENTATION DISORDER [None]
  - PYREXIA [None]
  - RASH ERYTHEMATOUS [None]
  - RASH MACULO-PAPULAR [None]
  - SKIN EXFOLIATION [None]
